FAERS Safety Report 6386701-7 (Version None)
Quarter: 2009Q4

REPORT INFORMATION
  Report Type: 
  Country: None (occurrence: None)
  Receive Date: 20091002
  Receipt Date: 20090922
  Transmission Date: 20100525
  Serious: Yes (Other)
  Sender: FDA-Public Use
  Company Number: AU-JNJFOC-20090707267

PATIENT
  Sex: Female

DRUGS (4)
  1. REMICADE [Suspect]
     Route: 042
     Dates: start: 20071120, end: 20090819
  2. REMICADE [Suspect]
     Route: 042
     Dates: start: 20071120, end: 20090819
  3. REMICADE [Suspect]
     Route: 042
     Dates: start: 20071120, end: 20090819
  4. REMICADE [Suspect]
     Indication: ANORECTAL DISORDER
     Route: 042
     Dates: start: 20071120, end: 20090819

REACTIONS (2)
  - ABORTION SPONTANEOUS [None]
  - DRUG EXPOSURE DURING PREGNANCY [None]
